FAERS Safety Report 16791522 (Version 1)
Quarter: 2019Q4

REPORT INFORMATION
  Report Type: Spontaneous
  Country: US (occurrence: US)
  Receive Date: 20190910
  Receipt Date: 20190910
  Transmission Date: 20200122
  Serious: Yes (Hospitalization)
  Sender: FDA-Public Use
  Company Number: None

PATIENT
  Age: 14 Year
  Sex: Male

DRUGS (9)
  1. CLONIDINE 0.1 MG TABS [Concomitant]
  2. KEPPRA [Concomitant]
     Active Substance: LEVETIRACETAM
  3. BETHKIS [Suspect]
     Active Substance: TOBRAMYCIN
     Indication: CEREBRAL PALSY
     Dosage: ?          OTHER FREQUENCY:EVERY 12 HOURS;?
     Route: 055
  4. DANTROLENE 50MG [Concomitant]
  5. DIAZEPAM 5MG [Concomitant]
     Active Substance: DIAZEPAM
  6. ALBUTEROL 0.083% NEBS [Concomitant]
  7. GABAPENTIN 250MG/5ML [Concomitant]
  8. BETHKIS [Suspect]
     Active Substance: TOBRAMYCIN
     Indication: TRACHEOSTOMY
     Dosage: ?          OTHER FREQUENCY:EVERY 12 HOURS;?
     Route: 055
  9. BACLOFEN. [Concomitant]
     Active Substance: BACLOFEN

REACTIONS (1)
  - Tracheostomy infection [None]

NARRATIVE: CASE EVENT DATE: 20190910
